FAERS Safety Report 9392217 (Version 3)
Quarter: 2013Q4

REPORT INFORMATION
  Report Type: Spontaneous
  Country: CO (occurrence: CO)
  Receive Date: 20130710
  Receipt Date: 20131107
  Transmission Date: 20140711
  Serious: Yes (Death, Hospitalization, Other)
  Sender: FDA-Public Use
  Company Number: CO-AMGEN-COLSP2013047862

PATIENT
  Age: 41 Year
  Sex: Male

DRUGS (5)
  1. ENBREL [Suspect]
     Indication: PSORIASIS
     Dosage: 50 MG, WEEKLY
     Route: 058
     Dates: start: 201211
  2. PYRIDOXINE [Concomitant]
     Indication: TUBERCULIN TEST POSITIVE
     Dosage: UNK, QD
     Route: 048
     Dates: start: 201211
  3. PYRIDOXINE [Concomitant]
     Dosage: UNK
     Route: 048
     Dates: start: 201211
  4. ISONIAZID [Concomitant]
     Indication: TUBERCULIN TEST POSITIVE
     Dosage: 3 TABLETS PER DAY
     Route: 048
     Dates: start: 201211
  5. ISONIAZID [Concomitant]
     Indication: PROPHYLAXIS
     Dosage: UNK
     Route: 048

REACTIONS (7)
  - Pulmonary congestion [Not Recovered/Not Resolved]
  - Pain [Not Recovered/Not Resolved]
  - Blood potassium decreased [Not Recovered/Not Resolved]
  - Pulmonary oedema [Not Recovered/Not Resolved]
  - Immunosuppression [Not Recovered/Not Resolved]
  - Escherichia sepsis [Fatal]
  - Septic shock [Fatal]
